FAERS Safety Report 8620200-4 (Version None)
Quarter: 2012Q3

REPORT INFORMATION
  Report Type: 
  Country: None (occurrence: None)
  Receive Date: 20120824
  Receipt Date: 20120823
  Transmission Date: 20120928
  Serious: Yes (Life-Threatening, Hospitalization, Other)
  Sender: FDA-Public Use
  Company Number: PHHO2010ES19380

PATIENT
  Sex: Male
  Weight: 78 kg

DRUGS (13)
  1. DIGOXIN [Suspect]
  2. ACENOCOUMAROL [Concomitant]
     Indication: ATRIAL FIBRILLATION
     Dosage: CHANGEABLE DOSE
     Dates: start: 20110209
  3. PLACEBO [Suspect]
     Indication: CARDIAC FAILURE ACUTE
     Dosage: CODE NOT BROKEN
     Route: 048
     Dates: start: 20101207, end: 20101220
  4. RAMIPRIL [Suspect]
     Dosage: 2.5 U, QD
     Route: 048
     Dates: start: 20110129, end: 20110717
  5. BLINDED ALISKIREN [Suspect]
     Indication: CARDIAC FAILURE ACUTE
     Dosage: CODE NOT BROKEN
     Route: 048
     Dates: start: 20101207, end: 20101220
  6. BLINDED NO TREATMENT RECEIVED [Suspect]
     Indication: CARDIAC FAILURE ACUTE
     Dosage: CODE NOT BROKEN
     Route: 048
     Dates: start: 20101207, end: 20101220
  7. BLINDED ALISKIREN [Suspect]
     Dosage: CODE NOT BROKEN
     Route: 048
     Dates: start: 20101221
  8. PLACEBO [Suspect]
     Dosage: CODE NOT BROKEN
     Route: 048
     Dates: start: 20101221
  9. CARVEDILOL [Concomitant]
     Indication: CARDIAC FAILURE CHRONIC
     Dosage: 3.125 MG, BID
     Route: 048
     Dates: start: 20110129, end: 20110717
  10. RAMIPRIL [Suspect]
     Indication: CARDIAC FAILURE CHRONIC
     Dosage: 2.5 U, QD
     Route: 048
     Dates: start: 20101207
  11. AMIODARONE HCL [Concomitant]
     Indication: ATRIAL FIBRILLATION
     Dosage: 200 MG, QD
     Route: 048
     Dates: start: 20110129, end: 20110717
  12. BLINDED NO TREATMENT RECEIVED [Suspect]
     Dosage: CODE NOT BROKEN
     Route: 048
     Dates: start: 20101221
  13. FUROSEMIDE [Concomitant]
     Indication: CARDIAC FAILURE CHRONIC
     Dosage: 60 MG, QD
     Route: 048
     Dates: start: 20110129, end: 20110717

REACTIONS (15)
  - CARDIAC FAILURE CONGESTIVE [None]
  - GASTROENTERITIS [None]
  - DIARRHOEA [None]
  - ELECTROCARDIOGRAM T WAVE ABNORMAL [None]
  - CONCOMITANT DISEASE PROGRESSION [None]
  - VOMITING [None]
  - HYPERHIDROSIS [None]
  - ACUTE CORONARY SYNDROME [None]
  - RENAL FAILURE CHRONIC [None]
  - MALAISE [None]
  - CHEST PAIN [None]
  - HYPERKALAEMIA [None]
  - TOXICITY TO VARIOUS AGENTS [None]
  - ATRIAL FIBRILLATION [None]
  - RENAL IMPAIRMENT [None]
